FAERS Safety Report 6259290-5 (Version None)
Quarter: 2009Q3

REPORT INFORMATION
  Report Type: 
  Country: None (occurrence: None)
  Receive Date: 20090707
  Receipt Date: 20090619
  Transmission Date: 20100115
  Serious: Yes (Hospitalization)
  Sender: FDA-Public Use
  Company Number: PHHO2005DE07388

PATIENT
  Sex: Male

DRUGS (56)
  1. CYCLOSPORINE [Suspect]
     Indication: RENAL TRANSPLANT
     Dosage: 180 MG, BID
     Route: 048
     Dates: start: 20040708
  2. CYCLOSPORINE [Suspect]
     Dosage: 70 MG/DAY
     Route: 048
  3. MYCOPHENOLATE MOFETIL [Suspect]
     Indication: RENAL TRANSPLANT
     Dosage: 500 MG, BID
     Route: 048
     Dates: start: 20040705
  4. MYCOPHENOLATE MOFETIL [Suspect]
     Dosage: 500 MG DAILY
     Route: 048
     Dates: start: 20040709
  5. MYCOPHENOLATE MOFETIL [Suspect]
     Dosage: 1000 MG, BID
     Route: 048
     Dates: start: 20040710
  6. MYCOPHENOLATE MOFETIL [Suspect]
     Dosage: 1500 MG
     Route: 048
     Dates: start: 20040712
  7. MYCOPHENOLATE MOFETIL [Suspect]
     Dosage: 1000 MG, BID
     Route: 048
     Dates: start: 20040713
  8. MYCOPHENOLATE MOFETIL [Suspect]
     Dosage: 500 MG, QID
     Route: 048
     Dates: start: 20040731
  9. MYCOPHENOLATE MOFETIL [Suspect]
     Dosage: 1000 MG, BID
     Route: 048
     Dates: start: 20040908
  10. MYCOPHENOLATE MOFETIL [Suspect]
     Dosage: 1000 MG DAILY
     Route: 048
     Dates: start: 20041124
  11. MYCOPHENOLATE MOFETIL [Suspect]
     Dosage: 500 MG, QD
     Route: 048
     Dates: start: 20060302
  12. MYCOPHENOLATE MOFETIL [Suspect]
     Dosage: 500 MG, TID
     Route: 048
     Dates: start: 20060310, end: 20060805
  13. MYCOPHENOLATE MOFETIL [Suspect]
     Dosage: 500 MG, BID
     Route: 048
     Dates: start: 20060819
  14. PREDNISOLONE [Suspect]
     Indication: RENAL TRANSPLANT
     Dosage: 100 MG, QD
     Route: 042
     Dates: start: 20040708
  15. PREDNISOLONE [Suspect]
     Dosage: 75 MG, QD
     Route: 048
     Dates: start: 20040709
  16. AMLODIPINE [Concomitant]
  17. AMPHOTERICIN B [Concomitant]
  18. ATORVASTATIN CALCIUM [Concomitant]
  19. BISOPROLOL FUMARATE [Concomitant]
  20. CEFUROXIME [Concomitant]
  21. DELIX PLUS [Concomitant]
  22. DILTIAZEM [Concomitant]
  23. FUROSEMID [Concomitant]
  24. ISOSORBIDE DINITRATE [Concomitant]
  25. METOPROLOL TARTRATE [Concomitant]
  26. MOLSIDOMIN [Concomitant]
  27. RAMIPRIL [Concomitant]
  28. AMPICILLIN AND SULBACTAM [Concomitant]
  29. URAPIDIL [Concomitant]
  30. CEFUROXIME [Concomitant]
  31. FLUVASTATIN [Concomitant]
  32. ASPIRIN [Concomitant]
  33. PROTAPHANE [Concomitant]
  34. SEMILENTE MC [Concomitant]
  35. DELIX [Concomitant]
  36. IRENAT [Concomitant]
  37. SIMVASTATIN [Concomitant]
  38. INSULIN LISPRO [Concomitant]
  39. HEPARIN [Concomitant]
  40. GLYCEROLTRINITRAT [Concomitant]
  41. MORPHINE [Concomitant]
  42. PROPOFOL [Concomitant]
  43. FENTANYL [Concomitant]
  44. MIDAZOLAM HCL [Concomitant]
  45. SUFENTANIL [Concomitant]
  46. ASPARTATE ZINC [Concomitant]
  47. CLOPIDOGREL [Concomitant]
  48. URALYT [Concomitant]
  49. CLONIDINE [Concomitant]
  50. HALOPERIDOL [Concomitant]
  51. DIAZEPAM [Concomitant]
  52. ZOPICLON [Concomitant]
  53. TORASEMIDE [Concomitant]
  54. EBRANTIL [Concomitant]
  55. LEVEMIR [Concomitant]
  56. ENOXAPARIN SODIUM [Concomitant]

REACTIONS (15)
  - ATRIOVENTRICULAR BLOCK COMPLETE [None]
  - ATRIOVENTRICULAR BLOCK SECOND DEGREE [None]
  - BRADYCARDIA [None]
  - CARDIAC FAILURE CONGESTIVE [None]
  - CARDIAC PACEMAKER INSERTION [None]
  - CARDIOGENIC SHOCK [None]
  - CATHETERISATION CARDIAC [None]
  - CORONARY ARTERY DISEASE [None]
  - DIZZINESS [None]
  - GANGRENE [None]
  - LOCALISED INFECTION [None]
  - PNEUMONIA [None]
  - PNEUMONIA CHLAMYDIAL [None]
  - PULMONARY SEPSIS [None]
  - STAPHYLOCOCCAL INFECTION [None]
